FAERS Safety Report 5999432-X (Version None)
Quarter: 2008Q4

REPORT INFORMATION
  Report Type: 
  Country: None (occurrence: None)
  Receive Date: 20081215
  Receipt Date: 20081208
  Transmission Date: 20090506
  Serious: Yes (Other)
  Sender: FDA-Public Use
  Company Number: GB-AMGEN-UK322759

PATIENT
  Sex: Female

DRUGS (2)
  1. ARANESP [Suspect]
     Indication: DIALYSIS
     Route: 058
     Dates: start: 20060601, end: 20081205
  2. EPREX [Concomitant]
     Route: 065

REACTIONS (1)
  - APLASIA PURE RED CELL [None]
